FAERS Safety Report 4951558-5 (Version None)
Quarter: 2006Q1

REPORT INFORMATION
  Report Type: 
  Country: None (occurrence: None)
  Receive Date: 20060317
  Receipt Date: 20060313
  Transmission Date: 20060701
  Serious: Yes (Death)
  Sender: FDA-Public Use
  Company Number: A044-002-005885

PATIENT
  Age: 82 Year
  Sex: Male

DRUGS (5)
  1. ARICEPT [Suspect]
     Dosage: ORAL
     Route: 048
  2. TRAZODONE HCL [Concomitant]
  3. FELODIPINE [Concomitant]
  4. DIURETIC [Concomitant]
  5. BENDROFLUMETHIAZIDE [Concomitant]

REACTIONS (2)
  - COMPLETED SUICIDE [None]
  - INJURY ASPHYXIATION [None]
